FAERS Safety Report 11022511 (Version 8)
Quarter: 2015Q3

REPORT INFORMATION
  Report Type: Spontaneous
  Country: US (occurrence: US)
  Receive Date: 20150413
  Receipt Date: 20150721
  Transmission Date: 20151125
  Serious: Yes (Other)
  Sender: FDA-Public Use
  Company Number: US-PFIZER INC-2015126256

PATIENT
  Age: 57 Year
  Sex: Female
  Weight: 41 kg

DRUGS (8)
  1. XELJANZ [Suspect]
     Active Substance: TOFACITINIB CITRATE
     Indication: RHEUMATOID ARTHRITIS
     Dosage: 5 MG, 2X/DAY
     Route: 048
     Dates: start: 201504
  2. CELEBREX [Concomitant]
     Active Substance: CELECOXIB
     Dosage: UNK
  3. TYLENOL [Concomitant]
     Active Substance: ACETAMINOPHEN
     Dosage: UNK
  4. VITAMIN D [Concomitant]
     Active Substance: CHOLECALCIFEROL
     Dosage: UNK
  5. KLONOPIN [Concomitant]
     Active Substance: CLONAZEPAM
     Dosage: UNK
  6. XELJANZ [Suspect]
     Active Substance: TOFACITINIB CITRATE
     Dosage: 5 MG, 2X/DAY
     Route: 048
     Dates: start: 20150504, end: 20150518
  7. PREVACID [Concomitant]
     Active Substance: LANSOPRAZOLE
     Dosage: UNK
  8. CULTURELLE [Concomitant]
     Active Substance: LACTOBACILLUS RHAMNOSUS
     Dosage: UNK

REACTIONS (27)
  - Anxiety [Unknown]
  - Pain in extremity [Unknown]
  - Decreased appetite [Unknown]
  - Abdominal pain upper [Not Recovered/Not Resolved]
  - Condition aggravated [Unknown]
  - Neoplasm malignant [Unknown]
  - Gait disturbance [Unknown]
  - Nausea [Unknown]
  - Rhinorrhoea [Unknown]
  - Dry throat [Unknown]
  - Condition aggravated [Not Recovered/Not Resolved]
  - Frequent bowel movements [Unknown]
  - Abdominal discomfort [Not Recovered/Not Resolved]
  - Lymphadenopathy [Unknown]
  - Fatigue [Not Recovered/Not Resolved]
  - Depression [Unknown]
  - Rheumatoid arthritis [Not Recovered/Not Resolved]
  - Drug ineffective [Unknown]
  - Hypokinesia [Unknown]
  - Pain [Not Recovered/Not Resolved]
  - Tongue discolouration [Unknown]
  - Pyrexia [Unknown]
  - Oropharyngeal pain [Unknown]
  - Peripheral swelling [Not Recovered/Not Resolved]
  - Eczema [Unknown]
  - Viral infection [Unknown]
  - Neck pain [Unknown]

NARRATIVE: CASE EVENT DATE: 201505
